FAERS Safety Report 12702751 (Version 3)
Quarter: 2017Q3

REPORT INFORMATION
  Report Type: Spontaneous
  Country: FR (occurrence: FR)
  Receive Date: 20160831
  Receipt Date: 20170726
  Transmission Date: 20171127
  Serious: Yes (Life-Threatening, Other)
  Sender: FDA-Public Use
  Company Number: FR-SUN PHARMACEUTICAL INDUSTRIES LTD-2016R1-123055

PATIENT
  Age: 64 Year
  Sex: Male

DRUGS (3)
  1. TACROLIMUS. [Suspect]
     Active Substance: TACROLIMUS
     Indication: IMMUNOSUPPRESSION
     Dosage: 7 MG, BID
     Route: 065
  2. MYCOPHENOLATE MOFETIL. [Suspect]
     Active Substance: MYCOPHENOLATE MOFETIL
     Indication: IMMUNOSUPPRESSION
     Dosage: 750 MG, BID
     Route: 065
  3. PREDNISONE. [Suspect]
     Active Substance: PREDNISONE
     Indication: IMMUNOSUPPRESSION
     Dosage: 10 MG, DAILY
     Route: 065

REACTIONS (5)
  - Acute kidney injury [Unknown]
  - Neutropenia [Unknown]
  - Overdose [Unknown]
  - Leukopenia [Unknown]
  - Cryptosporidiosis infection [Recovered/Resolved]

NARRATIVE: CASE EVENT DATE: 20140926
